FAERS Safety Report 8361187-1 (Version None)
Quarter: 2012Q2

REPORT INFORMATION
  Report Type: 
  Country: None (occurrence: None)
  Receive Date: 20120515
  Receipt Date: 20120430
  Transmission Date: 20120825
  Serious: Yes (Other)
  Sender: FDA-Public Use
  Company Number: US-ROCHE-1052739

PATIENT
  Sex: Male
  Weight: 75.364 kg

DRUGS (1)
  1. XELODA [Suspect]
     Indication: COLORECTAL CANCER METASTATIC
     Route: 048
     Dates: start: 20120310

REACTIONS (4)
  - OEDEMA PERIPHERAL [None]
  - GROIN PAIN [None]
  - DIARRHOEA [None]
  - BURNING SENSATION [None]
